FAERS Safety Report 8861633 (Version 2)
Quarter: 2012Q4

REPORT INFORMATION
  Report Type: Spontaneous
  Country: GB (occurrence: None)
  Receive Date: 20121024
  Receipt Date: 20121031
  Transmission Date: 20130627
  Serious: Yes (Hospitalization)
  Sender: FDA-Public Use
  Company Number: 2012AP003412

PATIENT
  Age: 75 Year
  Sex: Female

DRUGS (5)
  1. CITALOPRAM (CITALOPRAM) [Suspect]
     Indication: DRUG USE FOR UNKNOWN INDICATION
  2. METHYLTHIONINIUM CHLORIDE [Suspect]
     Indication: PARATHYROIDECTOMY
     Route: 041
  3. TRAMADOL (TRAMADOL) [Suspect]
     Indication: DRUG USE FOR UNKNOWN INDICATION
  4. ONDANSETRON (ONDANSETRON) [Concomitant]
  5. FENTANYL (FENTANYL) [Concomitant]

REACTIONS (13)
  - Serotonin syndrome [None]
  - Drug interaction [None]
  - Restless legs syndrome [None]
  - Respiratory distress [None]
  - Confusional state [None]
  - Agitation [None]
  - Tachycardia [None]
  - Depressed level of consciousness [None]
  - Pyrexia [None]
  - Hyperreflexia [None]
  - Myoclonus [None]
  - Dialysis [None]
  - Pneumonia [None]
